FAERS Safety Report 5280903-9 (Version None)
Quarter: 2007Q1

REPORT INFORMATION
  Report Type: 
  Country: None (occurrence: None)
  Receive Date: 20070329
  Receipt Date: 20070315
  Transmission Date: 20070707
  Serious: Yes (Hospitalization)
  Sender: FDA-Public Use
  Company Number: US-SHR-US-2007-009440

PATIENT
  Age: 62 Year
  Sex: Female

DRUGS (9)
  1. BETASERON [Suspect]
     Indication: MULTIPLE SCLEROSIS
     Dosage: 8 MIU, EVERY 2D
     Route: 058
     Dates: start: 20061009
  2. ALEVE [Suspect]
     Indication: PREMEDICATION
     Dates: start: 20061009
  3. LYRICA [Concomitant]
  4. AVANDIA [Concomitant]
  5. ATENOLOL [Concomitant]
  6. CEREFOLIN [Concomitant]
  7. NIFEDIPINE [Concomitant]
  8. JANUVIA (SITAGLIPTIN) [Concomitant]
  9. VYTORIN [Concomitant]

REACTIONS (9)
  - CHEST PAIN [None]
  - CHILLS [None]
  - FATIGUE [None]
  - LOSS OF CONSCIOUSNESS [None]
  - MIDDLE INSOMNIA [None]
  - NEPHROLITHIASIS [None]
  - PERIPHERAL ARTERIAL OCCLUSIVE DISEASE [None]
  - RENAL FAILURE [None]
  - TREMOR [None]
